FAERS Safety Report 12686619 (Version 1)
Quarter: 2016Q3

REPORT INFORMATION
  Report Type: Spontaneous
  Country: GB (occurrence: GB)
  Receive Date: 20160825
  Receipt Date: 20160825
  Transmission Date: 20161109
  Serious: Yes (Hospitalization)
  Sender: FDA-Public Use
  Company Number: GB-MYLANLABS-2016M1035043

PATIENT

DRUGS (18)
  1. ISOSORBIDE MONONITRATE. [Concomitant]
     Active Substance: ISOSORBIDE MONONITRATE
     Dosage: IN THE MORNING
     Route: 048
  2. CLOPIDOGREL [Concomitant]
     Active Substance: CLOPIDOGREL BISULFATE
     Dosage: IN THE MORNING
     Route: 048
  3. GLYCERYL TRINITRATE [Concomitant]
     Active Substance: NITROGLYCERIN
     Dosage: 300 ?G, UNK
     Route: 060
  4. WARFARIN [Concomitant]
     Active Substance: WARFARIN
     Dosage: AS PER ANTICOAGULANT BOOK
     Route: 048
  5. BISOPROLOL [Concomitant]
     Active Substance: BISOPROLOL
     Dosage: IN THE MORNING
     Route: 048
  6. PARACETAMOL [Concomitant]
     Active Substance: ACETAMINOPHEN
     Dosage: 1 G, QID
     Route: 048
  7. ATORVASTATIN [Concomitant]
     Active Substance: ATORVASTATIN
     Dosage: AT NIGHT
     Route: 048
  8. BISOPROLOL [Concomitant]
     Active Substance: BISOPROLOL
     Dosage: 3.75 MG, QD
     Route: 048
  9. LOSARTAN. [Suspect]
     Active Substance: LOSARTAN
     Dosage: 25 MG, QD
     Route: 048
  10. LOSARTAN. [Suspect]
     Active Substance: LOSARTAN
     Dosage: 50 MG, QD
     Route: 048
  11. DOUBLEBASE [Concomitant]
     Active Substance: ISOPROPYL MYRISTATE\PARAFFIN
     Dosage: 1 DF, UNK
     Route: 061
  12. QUININE SULFATE. [Concomitant]
     Active Substance: QUININE SULFATE
     Dosage: 200 MG, QD
     Route: 048
  13. ASPIRIN                            /00002701/ [Concomitant]
     Active Substance: ASPIRIN
     Dosage: 75 MG, QD
     Route: 048
     Dates: start: 20160713
  14. TRAMADOL. [Concomitant]
     Active Substance: TRAMADOL
     Dosage: 50MG-1G 4 HOURLY
     Route: 048
  15. FUROSEMIDE. [Suspect]
     Active Substance: FUROSEMIDE
     Dosage: 20 MG, QD
     Route: 048
  16. TAMSULOSIN [Concomitant]
     Active Substance: TAMSULOSIN
     Dosage: 400 ?G, QD
     Route: 048
  17. WARFARIN [Concomitant]
     Active Substance: WARFARIN
     Dosage: AS PER ANTICOAGULANT BOOK
     Route: 048
  18. NICORANDIL [Suspect]
     Active Substance: NICORANDIL
     Dosage: 20 MG, BID
     Route: 048

REACTIONS (5)
  - Infected skin ulcer [Recovered/Resolved]
  - Acute kidney injury [Recovered/Resolved]
  - Skin discolouration [Unknown]
  - Skin exfoliation [Unknown]
  - Pain [Unknown]

NARRATIVE: CASE EVENT DATE: 20160712
